FAERS Safety Report 23184689 (Version 1)
Quarter: 2023Q4

REPORT INFORMATION
  Report Type: Spontaneous
  Country: US (occurrence: None)
  Receive Date: 20231115
  Receipt Date: 20231115
  Transmission Date: 20240110
  Serious: No
  Sender: FDA-Public Use
  Company Number: 2023A200533

PATIENT

DRUGS (1)
  1. BREZTRI [Suspect]
     Active Substance: BUDESONIDE\FORMOTEROL\GLYCOPYRROLATE
     Indication: Asthma
     Route: 055

REACTIONS (9)
  - Arthritis [Unknown]
  - Wrong technique in device usage process [Unknown]
  - Device use issue [Unknown]
  - Incorrect dose administered by device [Unknown]
  - Product taste abnormal [Unknown]
  - Device difficult to use [Unknown]
  - Device delivery system issue [Unknown]
  - Product lot number issue [Unknown]
  - Product use issue [Unknown]
